FAERS Safety Report 12784811 (Version 1)
Quarter: 2016Q3

REPORT INFORMATION
  Report Type: Spontaneous
  Country: AU (occurrence: AU)
  Receive Date: 20160927
  Receipt Date: 20160927
  Transmission Date: 20161109
  Serious: Yes (Death)
  Sender: FDA-Public Use
  Company Number: AU-INGENUS PHARMACEUTICALS, LLC-ING201609-000047

PATIENT
  Age: 37 Year
  Sex: Female

DRUGS (1)
  1. PROBENECID AND COLCHICINE [Suspect]
     Active Substance: COLCHICINE\PROBENECID

REACTIONS (12)
  - Toxicity to various agents [Fatal]
  - Neutropenia [Unknown]
  - Circulatory collapse [Fatal]
  - Hepatic function abnormal [Unknown]
  - Renal impairment [Unknown]
  - Spur cell anaemia [Unknown]
  - Thrombocytopenia [Unknown]
  - Diarrhoea [Unknown]
  - Anaemia [Unknown]
  - Neurological decompensation [Unknown]
  - Intentional overdose [Unknown]
  - Hyperphosphataemia [Unknown]
